FAERS Safety Report 10102338 (Version 2)
Quarter: 2014Q2

REPORT INFORMATION
  Report Type: Spontaneous
  Country: US (occurrence: US)
  Receive Date: 20140424
  Receipt Date: 20140613
  Transmission Date: 20141212
  Serious: Yes (Disabling, Other)
  Sender: FDA-Public Use
  Company Number: US-PFIZER INC-2014113296

PATIENT
  Age: 53 Year
  Sex: Female
  Weight: 108.8 kg

DRUGS (2)
  1. PREMPRO [Suspect]
     Indication: HOT FLUSH
     Dosage: 0.625MG/5MG, 1X/DAY
     Route: 048
     Dates: end: 201402
  2. PREMPRO [Suspect]
     Indication: HORMONE REPLACEMENT THERAPY

REACTIONS (2)
  - Arthropathy [Unknown]
  - Hypertension [Unknown]
